FAERS Safety Report 6644308-8 (Version None)
Quarter: 2010Q1

REPORT INFORMATION
  Report Type: 
  Country: None (occurrence: None)
  Receive Date: 20100322
  Receipt Date: 20100308
  Transmission Date: 20100710
  Serious: Yes (Hospitalization)
  Sender: FDA-Public Use
  Company Number: PHHY2009DK19225

PATIENT
  Sex: Male

DRUGS (3)
  1. SANDIMMUNE [Suspect]
     Indication: RENAL TRANSPLANT
     Dosage: UNK
     Dates: start: 19810101, end: 20060101
  2. AZATHIOPRINE [Concomitant]
     Indication: RENAL TRANSPLANT
     Dosage: UNK
     Dates: start: 19810101
  3. PREDNISOLONE [Concomitant]
     Indication: RENAL TRANSPLANT
     Dosage: UNK
     Dates: start: 19810101

REACTIONS (17)
  - DIALYSIS [None]
  - EAR CANAL STENOSIS [None]
  - EAR NEOPLASM MALIGNANT [None]
  - EYE DISORDER [None]
  - HEARING IMPAIRED [None]
  - LESION EXCISION [None]
  - MALIGNANT TUMOUR EXCISION [None]
  - NORMAL TENSION GLAUCOMA [None]
  - OPTIC NERVE DISORDER [None]
  - RENAL FAILURE [None]
  - RENAL TRANSPLANT [None]
  - RETINAL DISORDER [None]
  - SKIN DISORDER [None]
  - SQUAMOUS CELL CARCINOMA [None]
  - SQUAMOUS CELL CARCINOMA OF SKIN [None]
  - TINNITUS [None]
  - VISUAL ACUITY REDUCED [None]
